FAERS Safety Report 6255550-2 (Version None)
Quarter: 2009Q2

REPORT INFORMATION
  Report Type: 
  Country: None (occurrence: None)
  Receive Date: 20090630
  Receipt Date: 20090622
  Transmission Date: 20091009
  Serious: Yes (Death)
  Sender: FDA-Public Use
  Company Number: WAES 0906USA04876

PATIENT

DRUGS (1)
  1. COZAAR [Suspect]
     Dosage: PO
     Route: 048

REACTIONS (1)
  - DEATH [None]
